FAERS Safety Report 6160294-1 (Version None)
Quarter: 2009Q2

REPORT INFORMATION
  Report Type: 
  Country: None (occurrence: None)
  Receive Date: 20090416
  Receipt Date: 20090416
  Transmission Date: 20091009
  Serious: Yes (Other)
  Sender: FDA-Public Use
  Company Number: None

PATIENT
  Sex: Female
  Weight: 88.905 kg

DRUGS (1)
  1. PANTOPRAZOLE SODIUM [Suspect]
     Indication: GASTROOESOPHAGEAL REFLUX DISEASE
     Dosage: ONE TABLET DAILY PO 1 YEAR APPROX.
     Route: 048

REACTIONS (8)
  - ABDOMINAL DISTENSION [None]
  - CONDITION AGGRAVATED [None]
  - DRUG LABEL CONFUSION [None]
  - ERUCTATION [None]
  - FLATULENCE [None]
  - GASTRIC PH DECREASED [None]
  - PRODUCT QUALITY ISSUE [None]
  - PRODUCT SUBSTITUTION ISSUE [None]
